FAERS Safety Report 6162966-1 (Version None)
Quarter: 2009Q2

REPORT INFORMATION
  Report Type: 
  Country: None (occurrence: None)
  Receive Date: 20090420
  Receipt Date: 20090403
  Transmission Date: 20091009
  Serious: Yes (Other)
  Sender: FDA-Public Use
  Company Number: 8044558

PATIENT
  Age: 41 Year
  Sex: Female

DRUGS (1)
  1. TUSSIONEX [Suspect]

REACTIONS (1)
  - PHARYNGEAL OEDEMA [None]
